FAERS Safety Report 4778631-9 (Version None)
Quarter: 2005Q3

REPORT INFORMATION
  Report Type: 
  Country: None (occurrence: None)
  Receive Date: 20050922
  Receipt Date: 20050907
  Transmission Date: 20060218
  Serious: Yes (Hospitalization)
  Sender: FDA-Public Use
  Company Number: 217715

PATIENT
  Age: 75 Year
  Sex: Male
  Weight: 69 kg

DRUGS (10)
  1. AVASTIN [Suspect]
     Indication: COLON CANCER
     Dosage: 7.5 MG/KG, Q3W, INTRAVENOUS
     Route: 042
     Dates: start: 20050511, end: 20050725
  2. CAPECITABINE (CAPECITABINE) [Suspect]
     Indication: COLON CANCER
     Dosage: 1800 MG, BID, ORAL
     Route: 048
     Dates: start: 20050511, end: 20050807
  3. OXALIPLATIN (OXALIPLATIN) [Suspect]
     Indication: COLON CANCER
     Dosage: 230 MG, Q3W, INTRAVENOUS
     Route: 042
     Dates: start: 20050511, end: 20050725
  4. PLAVIX [Concomitant]
  5. CONCOMITANT DRUG [Concomitant]
  6. TAREG (VALSARTAN) [Concomitant]
  7. ISOPTIN [Concomitant]
  8. TRIVASTAL (PIRIBEDIL) [Concomitant]
  9. PANTOPRAZOLE SODIUM [Concomitant]
  10. VAGOSTABYL (HERBAL, HOMEOPATHIC, + DIETARY SUPPLEMENTS) [Concomitant]

REACTIONS (8)
  - CULTURE STOOL POSITIVE [None]
  - DIARRHOEA [None]
  - NEUTROPHIL COUNT DECREASED [None]
  - PALMAR-PLANTAR ERYTHRODYSAESTHESIA SYNDROME [None]
  - PYREXIA [None]
  - RHINITIS [None]
  - STAPHYLOCOCCAL INFECTION [None]
  - WHITE BLOOD CELL COUNT DECREASED [None]
